FAERS Safety Report 12579077 (Version 1)
Quarter: 2016Q3

REPORT INFORMATION
  Report Type: Spontaneous
  Country: US (occurrence: US)
  Receive Date: 20160721
  Receipt Date: 20160721
  Transmission Date: 20161109
  Serious: No
  Sender: FDA-Public Use
  Company Number: US-ELI_LILLY_AND_COMPANY-US201607004013

PATIENT

DRUGS (2)
  1. INSULIN, ANIMAL [Suspect]
     Active Substance: INSULIN NOS
     Indication: SPERMATOZOA PROGRESSIVE MOTILITY ABNORMAL
     Dosage: UNK, UNKNOWN
     Route: 065
     Dates: start: 1969, end: 1971
  2. INSULIN, ANIMAL [Suspect]
     Active Substance: INSULIN NOS
     Indication: BLOOD TESTOSTERONE

REACTIONS (2)
  - Exposure via father [Unknown]
  - Off label use [Unknown]
